FAERS Safety Report 4307415-0 (Version None)
Quarter: 2004Q1

REPORT INFORMATION
  Report Type: 
  Country: None (occurrence: None)
  Receive Date: 20040226
  Receipt Date: 20040213
  Transmission Date: 20041129
  Serious: Yes (Death)
  Sender: FDA-Public Use
  Company Number: 2003AP04579

PATIENT
  Age: 53 Year
  Sex: Male

DRUGS (5)
  1. IRESSA [Suspect]
     Indication: NON-SMALL CELL LUNG CANCER
     Dosage: 250 MG DAILY PO
     Route: 048
     Dates: start: 20031008, end: 20031030
  2. MARZULENE [Concomitant]
  3. NAIXAN [Concomitant]
  4. OXYCONTIN [Concomitant]
  5. MAGNESIUM OXIDE [Concomitant]

REACTIONS (1)
  - RENAL FAILURE [None]
